FAERS Safety Report 10201263 (Version 3)
Quarter: 2014Q3

REPORT INFORMATION
  Report Type: Spontaneous
  Country: IT (occurrence: IT)
  Receive Date: 20140528
  Receipt Date: 20140801
  Transmission Date: 20150326
  Serious: Yes (Hospitalization)
  Sender: FDA-Public Use
  Company Number: IT-SA-2014SA065382

PATIENT
  Age: 66 Year
  Sex: Male

DRUGS (13)
  1. ENAPREN [Concomitant]
     Active Substance: ENALAPRIL MALEATE
     Dosage: STRENGTH 5 MG
     Route: 048
  2. SEACOR [Concomitant]
     Active Substance: OMEGA-3 FATTY ACIDS
     Dosage: STRENGTH 1 G ?FORM: SOFT CAPSULE
     Route: 048
  3. LANSOX [Concomitant]
     Active Substance: LANSOPRAZOLE
     Dosage: STRNGTH 30MG?FORM RIGID CAPSULE
     Route: 048
     Dates: start: 20130319, end: 20131211
  4. LANTUS [Suspect]
     Active Substance: INSULIN GLARGINE
     Indication: DIABETES MELLITUS
     Dosage: DOSE:50 UNIT(S)
     Route: 058
     Dates: start: 20130219, end: 20131211
  5. DILATREND [Concomitant]
     Active Substance: CARVEDILOL
     Dosage: STRENGTH 25 MG
     Route: 048
  6. SIVASTIN [Concomitant]
     Active Substance: SIMVASTATIN
     Dosage: 40 MG STRENGTH
     Route: 048
  7. AVODART [Concomitant]
     Active Substance: DUTASTERIDE
     Dosage: STRENGTH 0.5 MG SOFT CAPSULE
     Route: 048
     Dates: start: 20130319, end: 20131211
  8. LASIX [Concomitant]
     Active Substance: FUROSEMIDE
     Dosage: STRENGTH 500 MG
     Route: 048
  9. ALPRAZOLAM. [Concomitant]
     Active Substance: ALPRAZOLAM
     Dosage: 0.50  MG
     Route: 048
  10. TICLOPIDINE HYDROCHLORIDE. [Concomitant]
     Active Substance: TICLOPIDINE HYDROCHLORIDE
     Dosage: 250 MG STRENGTH
     Route: 048
     Dates: start: 20130319, end: 20131211
  11. ZYLORIC [Concomitant]
     Active Substance: ALLOPURINOL
     Dosage: STRENGTH 300 MG
     Route: 048
  12. HUMALOG [Suspect]
     Active Substance: INSULIN LISPRO
     Indication: DIABETES MELLITUS
     Dosage: DOSE:25 UNIT(S)
     Route: 058
     Dates: start: 20130319, end: 20131211
  13. AMIODARONE HYDROCHLORIDE. [Concomitant]
     Active Substance: AMIODARONE HYDROCHLORIDE
     Dosage: STRENGTH 200 MG
     Route: 048

REACTIONS (3)
  - Hypoglycaemia [Recovered/Resolved]
  - Chest pain [Recovered/Resolved]
  - Abdominal pain [Recovered/Resolved]

NARRATIVE: CASE EVENT DATE: 20130326
